FAERS Safety Report 6009300-5 (Version None)
Quarter: 2008Q4

REPORT INFORMATION
  Report Type: 
  Country: None (occurrence: None)
  Receive Date: 20081217
  Receipt Date: 20071210
  Transmission Date: 20090506
  Serious: No
  Sender: FDA-Public Use
  Company Number: US-AMGEN-KDL256411

PATIENT
  Sex: Female

DRUGS (3)
  1. ENBREL [Suspect]
     Indication: PSORIATIC ARTHROPATHY
     Route: 058
     Dates: start: 20030101
  2. ENBREL [Suspect]
     Indication: PSORIASIS
  3. UNSPECIFIED MEDICATION [Concomitant]

REACTIONS (5)
  - BLOOD GLUCOSE FLUCTUATION [None]
  - CATARACT [None]
  - PSORIASIS [None]
  - PSORIATIC ARTHROPATHY [None]
  - VISUAL ACUITY REDUCED [None]
